FAERS Safety Report 19089903 (Version 1)
Quarter: 2021Q2

REPORT INFORMATION
  Report Type: Spontaneous
  Country: JP (occurrence: JP)
  Receive Date: 20210404
  Receipt Date: 20210404
  Transmission Date: 20210717
  Serious: Yes (Hospitalization)
  Sender: FDA-Public Use
  Company Number: JP-UCBSA-2021014509

PATIENT
  Age: 70 Year
  Sex: Female

DRUGS (1)
  1. CIMZIA [Suspect]
     Active Substance: CERTOLIZUMAB PEGOL
     Indication: RHEUMATOID ARTHRITIS
     Dosage: UNK, EV 2 WEEKS(QOW)
     Route: 058

REACTIONS (1)
  - COVID-19 pneumonia [Unknown]
